FAERS Safety Report 6157912-0 (Version None)
Quarter: 2009Q2

REPORT INFORMATION
  Report Type: 
  Country: None (occurrence: None)
  Receive Date: 20090417
  Receipt Date: 20090409
  Transmission Date: 20091009
  Serious: Yes (Death)
  Sender: FDA-Public Use
  Company Number: US-JNJFOC-20070905995

PATIENT
  Sex: Female
  Weight: 56.7 kg

DRUGS (23)
  1. DURAGESIC-100 [Suspect]
     Route: 062
  2. DURAGESIC-100 [Suspect]
     Route: 062
  3. DURAGESIC-100 [Suspect]
     Route: 062
  4. DURAGESIC-100 [Suspect]
     Route: 062
  5. DURAGESIC-100 [Suspect]
     Indication: PAIN
     Route: 062
  6. VALIUM [Concomitant]
  7. BUPROPION HCL [Concomitant]
  8. VALPROIC ACID [Concomitant]
  9. OLANZAPINE [Concomitant]
  10. DEPAKOTE [Concomitant]
  11. ZYPREXA [Concomitant]
  12. BACLOFEN [Concomitant]
  13. HYDROCODONE BITARTRATE [Concomitant]
     Dosage: 10/500
  14. LEVOTHROID [Concomitant]
  15. OMEPRAZOLE [Concomitant]
  16. ACTONEL [Concomitant]
  17. ALLEGRA [Concomitant]
  18. WELLBUTRIN [Concomitant]
  19. ESTRADIOL [Concomitant]
  20. ROBINUL [Concomitant]
  21. CELEXA [Concomitant]
  22. AUGMENTIN '125' [Concomitant]
  23. BACTROBAN [Concomitant]

REACTIONS (2)
  - DEVICE FAILURE [None]
  - DRUG TOXICITY [None]
